FAERS Safety Report 4467988-4 (Version None)
Quarter: 2004Q4

REPORT INFORMATION
  Report Type: 
  Country: None (occurrence: None)
  Receive Date: 20041004
  Receipt Date: 20040921
  Transmission Date: 20050328
  Serious: Yes (Death)
  Sender: FDA-Public Use
  Company Number: MK200409-0197-1

PATIENT
  Age: 17 Year
  Sex: Female

DRUGS (1)
  1. PAMELOR [Suspect]
     Indication: HEADACHE
     Dosage: 10MG, DAILY
     Dates: start: 20040806, end: 20040806

REACTIONS (5)
  - CARDIO-RESPIRATORY ARREST [None]
  - COMA [None]
  - CONVULSION [None]
  - CYANOSIS [None]
  - SKIN DISCOLOURATION [None]
